FAERS Safety Report 25902069 (Version 2)
Quarter: 2025Q4

REPORT INFORMATION
  Report Type: Spontaneous
  Country: GB (occurrence: GB)
  Receive Date: 20251009
  Receipt Date: 20251014
  Transmission Date: 20260118
  Serious: Yes (Life-Threatening, Hospitalization, Other)
  Sender: DR REDDYS
  Company Number: None

PATIENT
  Age: 42 Year
  Sex: Female

DRUGS (3)
  1. OLANZAPINE [Suspect]
     Active Substance: OLANZAPINE
     Indication: Schizophrenia
     Dosage: REINTRODUCTION
  2. OLANZAPINE [Suspect]
     Active Substance: OLANZAPINE
  3. LURASIDONE [Concomitant]
     Active Substance: LURASIDONE
     Indication: Schizophrenia

REACTIONS (5)
  - Rhabdomyolysis [Recovered/Resolved]
  - Blood creatine phosphokinase increased [Unknown]
  - Myositis [Unknown]
  - Compartment syndrome [Unknown]
  - Peroneal nerve palsy [Unknown]
